FAERS Safety Report 24270009 (Version 1)
Quarter: 2024Q3

REPORT INFORMATION
  Report Type: Spontaneous
  Country: CN (occurrence: CN)
  Receive Date: 20240830
  Receipt Date: 20240830
  Transmission Date: 20241017
  Serious: Yes (Other)
  Sender: ELI LILLY AND CO
  Company Number: CN-ELI_LILLY_AND_COMPANY-CN202408013814

PATIENT
  Age: 57 Year
  Sex: Male
  Weight: 54 kg

DRUGS (5)
  1. CYRAMZA [Suspect]
     Active Substance: RAMUCIRUMAB
     Indication: Rectal cancer
     Dosage: 350 MG, DAILY
     Route: 042
     Dates: start: 20240703, end: 20240703
  2. CYRAMZA [Suspect]
     Active Substance: RAMUCIRUMAB
     Dosage: 350 MG, DAILY
     Route: 042
     Dates: start: 20240719, end: 20240719
  3. CAPECITABINE [Suspect]
     Active Substance: CAPECITABINE
     Indication: Rectal cancer
     Dosage: 1.5 G, BID
     Route: 048
     Dates: start: 20240703, end: 20240717
  4. SODIUM CHLORIDE [Concomitant]
     Active Substance: SODIUM CHLORIDE
     Indication: Product used for unknown indication
     Dosage: 250 ML, DAILY
     Route: 041
     Dates: start: 20240703, end: 20240703
  5. SODIUM CHLORIDE [Concomitant]
     Active Substance: SODIUM CHLORIDE
     Dosage: 250 ML, DAILY
     Route: 041
     Dates: start: 20240719, end: 20240719

REACTIONS (1)
  - Drug-induced liver injury [Unknown]

NARRATIVE: CASE EVENT DATE: 20240806
